FAERS Safety Report 23391969 (Version 1)
Quarter: 2024Q1

REPORT INFORMATION
  Report Type: Spontaneous
  Country: US (occurrence: US)
  Receive Date: 20240111
  Receipt Date: 20240111
  Transmission Date: 20240410
  Serious: Yes (Death)
  Sender: FDA-Public Use
  Company Number: US-AMGEN-USASP2024003665

PATIENT
  Age: 40 Year
  Sex: Male

DRUGS (6)
  1. BEVACIZUMAB [Suspect]
     Active Substance: BEVACIZUMAB
     Indication: Malignant oligodendroglioma
     Dosage: UNK
     Route: 065
  2. BEVACIZUMAB [Suspect]
     Active Substance: BEVACIZUMAB
     Indication: Glioblastoma
  3. PROCARBAZINE [Suspect]
     Active Substance: PROCARBAZINE
     Indication: Malignant oligodendroglioma
     Route: 065
  4. PROCARBAZINE [Suspect]
     Active Substance: PROCARBAZINE
     Indication: Glioblastoma
  5. LOMUSTINE [Suspect]
     Active Substance: LOMUSTINE
     Indication: Malignant oligodendroglioma
     Route: 065
  6. LOMUSTINE [Suspect]
     Active Substance: LOMUSTINE
     Indication: Glioblastoma

REACTIONS (1)
  - Glioblastoma [Fatal]
